FAERS Safety Report 5233120-2 (Version None)
Quarter: 2007Q1

REPORT INFORMATION
  Report Type: 
  Country: None (occurrence: None)
  Receive Date: 20061204
  Receipt Date: 20060801
  Transmission Date: 20070707
  Serious: No
  Sender: FDA-Public Use
  Company Number: 2006-BP-04481BP

PATIENT
  Age: 70 Year
  Sex: Male

DRUGS (7)
  1. SPIRIVA [Suspect]
     Indication: EMPHYSEMA
     Dosage: 18 MCG (18 MCG,1 IN 1 D), IH
     Route: 055
     Dates: start: 20050401
  2. SPIRIVA [Suspect]
  3. SPIRIVA [Suspect]
  4. SPIRIVA [Suspect]
  5. ADVAIR (SERETIDE /01420901/) [Concomitant]
  6. LIPITOR [Concomitant]
  7. ZETIA [Concomitant]

REACTIONS (1)
  - DYSGEUSIA [None]
